FAERS Safety Report 11898054 (Version 1)
Quarter: 2016Q1

REPORT INFORMATION
  Report Type: Spontaneous
  Country: US (occurrence: None)
  Receive Date: 20160107
  Receipt Date: 20160107
  Transmission Date: 20160526
  Serious: Yes (Life-Threatening, Hospitalization, Disabling, Other)
  Sender: FDA-Public Use
  Company Number: None

PATIENT
  Age: 53 Year
  Sex: Male
  Weight: 86.18 kg

DRUGS (4)
  1. CARDINALHEALTH ALCOHOL PREP PADS LARGE [Suspect]
     Active Substance: ISOPROPYL ALCOHOL
     Indication: INFECTION PROPHYLAXIS
     Dosage: PREP PADS #?, 1 BOX, TPN SKIN AND ALL CLEANING
     Dates: start: 201101, end: 201101
  2. BLOOD PRESSURE + HEART [Concomitant]
  3. VITAMIN B [Concomitant]
     Active Substance: VITAMIN B
  4. VITAMIN D3 [Concomitant]
     Active Substance: CHOLECALCIFEROL

REACTIONS (5)
  - Peripheral vascular disorder [None]
  - Hypoaesthesia [None]
  - Staphylococcal infection [None]
  - Drug administration error [None]
  - Poor venous access [None]

NARRATIVE: CASE EVENT DATE: 20110103
